FAERS Safety Report 19125620 (Version 4)
Quarter: 2021Q3

REPORT INFORMATION
  Report Type: Spontaneous
  Country: US (occurrence: US)
  Receive Date: 20210412
  Receipt Date: 20210711
  Transmission Date: 20211014
  Serious: No
  Sender: FDA-Public Use
  Company Number: US-ORGANON-O2104USA000517

PATIENT
  Sex: Female

DRUGS (1)
  1. NEXPLANON [Suspect]
     Active Substance: ETONOGESTREL
     Dosage: 1 IMPLANT, EVERY 3 YEARS, IN LEFT ARM
     Route: 059
     Dates: start: 20201222

REACTIONS (2)
  - Device breakage [Not Recovered/Not Resolved]
  - Implant site pain [Not Recovered/Not Resolved]
